FAERS Safety Report 7039298-2 (Version None)
Quarter: 2010Q3

REPORT INFORMATION
  Report Type: 
  Country: None (occurrence: None)
  Receive Date: 20100930
  Receipt Date: 20100924
  Transmission Date: 20110219
  Serious: No
  Sender: FDA-Public Use
  Company Number: ES-IGSA-IG661

PATIENT
  Age: 66 Year
  Sex: Male
  Weight: 57 kg

DRUGS (3)
  1. FLEBOGAMMA 5% [Suspect]
     Dosage: FROM 01/2008 TO 02/2010 30 G MONTHLY IV
     Route: 042
     Dates: start: 20080130, end: 20100301
  2. ANOTHER IVIG BRAND NAME (HUMAN NORMAL IMMUNOGLOBULIN) [Suspect]
     Dosage: FROM 02/2010 20 G MONTHLY IV
     Route: 042
  3. QUARANTINED RED BLOOD CELLS CONCENTRATE TRANSFUSION ON MARCH 2008 [Suspect]

REACTIONS (6)
  - ALANINE AMINOTRANSFERASE INCREASED [None]
  - ANTI-HBC ANTIBODY POSITIVE [None]
  - ANTI-HBS ANTIBODY POSITIVE [None]
  - ASPARTATE AMINOTRANSFERASE INCREASED [None]
  - BLOOD ALKALINE PHOSPHATASE INCREASED [None]
  - HEPATITIS C ANTIBODY POSITIVE [None]
